FAERS Safety Report 20190374 (Version 1)
Quarter: 2021Q4

REPORT INFORMATION
  Report Type: Spontaneous
  Country: TW (occurrence: TW)
  Receive Date: 20211215
  Receipt Date: 20211215
  Transmission Date: 20220303
  Serious: Yes (Life-Threatening)
  Sender: FDA-Public Use
  Company Number: TW-JNJFOC-20211214030

PATIENT
  Age: 45 Year
  Sex: Female
  Weight: 58 kg

DRUGS (8)
  1. SIMPONI [Suspect]
     Active Substance: GOLIMUMAB
     Indication: Rheumatoid arthritis
     Route: 058
     Dates: start: 20130911, end: 20211006
  2. METHOTREXATE [Concomitant]
     Active Substance: METHOTREXATE
  3. AZATHIOPRINE [Concomitant]
     Active Substance: AZATHIOPRINE
  4. CYCLOSPORINE [Concomitant]
     Active Substance: CYCLOSPORINE
  5. MERCAPTOPURINE [Concomitant]
     Active Substance: MERCAPTOPURINE
  6. PREDNISONE [Concomitant]
     Active Substance: PREDNISONE
  7. HYDROXYCHLOROQUINE SULFATE [Concomitant]
     Active Substance: HYDROXYCHLOROQUINE SULFATE
  8. SULFASALAZINE [Concomitant]
     Active Substance: SULFASALAZINE

REACTIONS (1)
  - Breast cancer [Not Recovered/Not Resolved]

NARRATIVE: CASE EVENT DATE: 20211125
